FAERS Safety Report 6315093-4 (Version None)
Quarter: 2009Q3

REPORT INFORMATION
  Report Type: 
  Country: None (occurrence: None)
  Receive Date: 20090817
  Receipt Date: 20090806
  Transmission Date: 20100115
  Serious: Yes (Hospitalization)
  Sender: FDA-Public Use
  Company Number: GXKR2009ES08956

PATIENT
  Age: 56 Year
  Sex: Female

DRUGS (5)
  1. ISONIAZID [Suspect]
     Indication: PANNICULITIS
  2. PAROXETINE HCL [Suspect]
  3. PYRAZINAMIDE [Concomitant]
  4. RIFAMPICIN [Concomitant]
  5. PYRIDOXINE (PYRIDOXINE) [Concomitant]

REACTIONS (1)
  - SEROTONIN SYNDROME [None]
